FAERS Safety Report 18904961 (Version 1)
Quarter: 2021Q1

REPORT INFORMATION
  Report Type: Spontaneous
  Country: US (occurrence: US)
  Receive Date: 20210217
  Receipt Date: 20210217
  Transmission Date: 20210420
  Serious: Yes (Hospitalization, Other)
  Sender: FDA-Public Use
  Company Number: None

PATIENT
  Age: 63 Year
  Sex: Male
  Weight: 67.1 kg

DRUGS (1)
  1. SULFASALAZINE. [Suspect]
     Active Substance: SULFASALAZINE
     Indication: RHEUMATOID ARTHRITIS
     Dates: start: 20210122, end: 20210125

REACTIONS (4)
  - Hepatic enzyme increased [None]
  - Drug reaction with eosinophilia and systemic symptoms [None]
  - Pain [None]
  - Rash [None]

NARRATIVE: CASE EVENT DATE: 20210125
